FAERS Safety Report 14359916 (Version 3)
Quarter: 2019Q4

REPORT INFORMATION
  Report Type: Spontaneous
  Country: US (occurrence: US)
  Receive Date: 20180105
  Receipt Date: 20191227
  Transmission Date: 20200122
  Serious: No
  Sender: FDA-Public Use
  Company Number: US-SA-2017SA169966

PATIENT
  Sex: Female

DRUGS (7)
  1. ZANTAC 75 [Suspect]
     Active Substance: RANITIDINE HYDROCHLORIDE
     Dosage: INCREASES DOSE PAST THE 4 HALF DOSES
  2. ZANTAC 75 [Suspect]
     Active Substance: RANITIDINE HYDROCHLORIDE
     Dosage: 4 HALF DOSES PER DAY (300 MG DAILY)
     Route: 048
  3. ZANTAC 75 [Suspect]
     Active Substance: RANITIDINE HYDROCHLORIDE
     Indication: HYPERSENSITIVITY
     Dosage: 75 MG, UNK
     Route: 048
  4. ZANTAC 75 [Suspect]
     Active Substance: RANITIDINE HYDROCHLORIDE
     Dosage: UNK
  5. ZANTAC 75 [Suspect]
     Active Substance: RANITIDINE HYDROCHLORIDE
     Dosage: UNK
  6. ZANTAC 75 [Suspect]
     Active Substance: RANITIDINE HYDROCHLORIDE
     Dosage: 75 MG, UNK
     Route: 048
  7. ZANTAC 75 [Suspect]
     Active Substance: RANITIDINE HYDROCHLORIDE
     Dosage: UNK

REACTIONS (14)
  - Dysgeusia [Unknown]
  - Unevaluable event [Unknown]
  - Product taste abnormal [Unknown]
  - Insomnia [Unknown]
  - Headache [Unknown]
  - Sleep disorder [Unknown]
  - Agitation [Unknown]
  - Gastric disorder [Unknown]
  - Dry eye [Unknown]
  - Nausea [Unknown]
  - Hypomania [Unknown]
  - Product storage error [Unknown]
  - Eye pain [Unknown]
  - Product odour abnormal [Unknown]
